FAERS Safety Report 25475849 (Version 1)
Quarter: 2025Q2

REPORT INFORMATION
  Report Type: Report from Study
  Country: CA (occurrence: CA)
  Receive Date: 20250624
  Receipt Date: 20250624
  Transmission Date: 20250716
  Serious: Yes (Hospitalization)
  Sender: ABBVIE
  Company Number: CA-ABBVIE-6339382

PATIENT
  Age: 65 Year
  Sex: Male

DRUGS (1)
  1. LUPRON [Suspect]
     Active Substance: LEUPROLIDE ACETATE
     Indication: Prostate cancer
     Dosage: STRENGTH- 30 MG
     Route: 065
     Dates: start: 20230623

REACTIONS (1)
  - Palliative care [Unknown]

NARRATIVE: CASE EVENT DATE: 20250101
